FAERS Safety Report 5770560-7 (Version None)
Quarter: 2008Q2

REPORT INFORMATION
  Report Type: 
  Country: None (occurrence: None)
  Receive Date: 20080613
  Receipt Date: 20080501
  Transmission Date: 20081010
  Serious: No
  Sender: FDA-Public Use
  Company Number: US-ABBOTT-08P-163-0450175-00

PATIENT
  Age: 46 Year
  Sex: Male
  Weight: 72.958 kg

DRUGS (4)
  1. HUMIRA [Suspect]
     Indication: RHEUMATOID ARTHRITIS
     Route: 058
     Dates: start: 20080401
  2. HUMIRA [Suspect]
     Route: 058
     Dates: start: 20070101, end: 20071001
  3. HUMIRA [Suspect]
     Indication: RHEUMATOID ARTHRITIS
     Route: 058
     Dates: start: 20071001, end: 20080301
  4. HUMIRA [Suspect]
     Route: 058
     Dates: start: 20080301, end: 20080401

REACTIONS (2)
  - DRUG INEFFECTIVE [None]
  - INJECTION SITE IRRITATION [None]
